FAERS Safety Report 21665110 (Version 1)
Quarter: 2022Q4

REPORT INFORMATION
  Report Type: Report from Study
  Country: US (occurrence: US)
  Receive Date: 20221130
  Receipt Date: 20221130
  Transmission Date: 20230112
  Serious: Yes (Other)
  Sender: FDA-Public Use
  Company Number: US-drreddys-CLI/USA/22/0157548

PATIENT
  Age: 25 Year
  Sex: Female

DRUGS (2)
  1. ACCUTANE [Suspect]
     Active Substance: ISOTRETINOIN
     Indication: Product used for unknown indication
     Dates: start: 20220601, end: 20221001
  2. ACCUTANE [Suspect]
     Active Substance: ISOTRETINOIN
     Dates: start: 20220601, end: 20221001

REACTIONS (1)
  - Exposure during pregnancy [Unknown]
